FAERS Safety Report 17572891 (Version 1)
Quarter: 2020Q1

REPORT INFORMATION
  Report Type: Spontaneous
  Country: ES (occurrence: ES)
  Receive Date: 20200323
  Receipt Date: 20200323
  Transmission Date: 20200409
  Serious: Yes (Hospitalization)
  Sender: FDA-Public Use
  Company Number: NVSC2020ES077345

PATIENT
  Age: 66 Year
  Sex: Female

DRUGS (1)
  1. ATORVASTATIN [Suspect]
     Active Substance: ATORVASTATIN
     Indication: ACUTE MYOCARDIAL INFARCTION
     Dosage: 80 MG, QD
     Route: 048
     Dates: start: 20181201, end: 20190330

REACTIONS (4)
  - Rhabdomyolysis [Recovered/Resolved]
  - Muscular weakness [Recovered/Resolved]
  - Transaminases increased [Recovered/Resolved]
  - Blood creatine phosphokinase increased [Recovered/Resolved]

NARRATIVE: CASE EVENT DATE: 20190320
